FAERS Safety Report 20017034 (Version 1)
Quarter: 2021Q4

REPORT INFORMATION
  Report Type: Spontaneous
  Country: GB (occurrence: GB)
  Receive Date: 20211030
  Receipt Date: 20211030
  Transmission Date: 20220303
  Serious: Yes (Life-Threatening, Hospitalization, Other)
  Sender: FDA-Public Use
  Company Number: GB-MHRA-EYC 00263413

PATIENT
  Age: 25 Year
  Sex: Female
  Weight: 50.8 kg

DRUGS (2)
  1. SERTRALINE [Suspect]
     Active Substance: SERTRALINE HYDROCHLORIDE
     Indication: Somnolence
     Dosage: 50 MILLIGRAM, ONCE A DAY
     Route: 048
  2. NYTOL [Concomitant]
     Active Substance: DIPHENHYDRAMINE HYDROCHLORIDE
     Indication: Sleep disorder
     Dosage: UNK
     Route: 065

REACTIONS (4)
  - Depressive symptom [Unknown]
  - Feeling abnormal [Unknown]
  - Intentional overdose [Unknown]
  - Suicidal ideation [Unknown]
